FAERS Safety Report 13922843 (Version 1)
Quarter: 2017Q3

REPORT INFORMATION
  Report Type: Spontaneous
  Country: GB (occurrence: GB)
  Receive Date: 20170830
  Receipt Date: 20170830
  Transmission Date: 20171127
  Serious: Yes (Other)
  Sender: FDA-Public Use
  Company Number: GB-ASTRAZENECA-2017SE87665

PATIENT
  Sex: Female

DRUGS (3)
  1. SEROQUEL [Suspect]
     Active Substance: QUETIAPINE FUMARATE
     Dosage: 200MG, 3 DF AT NIGHT
     Route: 048
  2. RISPERIDONE. [Concomitant]
     Active Substance: RISPERIDONE
  3. VENTOLIN [Concomitant]
     Active Substance: ALBUTEROL SULFATE

REACTIONS (6)
  - Abdominal distension [Unknown]
  - Malaise [Unknown]
  - Dysgeusia [Unknown]
  - Eyelid ptosis [Unknown]
  - Chest discomfort [Unknown]
  - Dyspepsia [Unknown]
